FAERS Safety Report 7402816-6 (Version None)
Quarter: 2011Q2

REPORT INFORMATION
  Report Type: 
  Country: None (occurrence: None)
  Receive Date: 20110408
  Receipt Date: 20110328
  Transmission Date: 20111010
  Serious: Yes (Hospitalization, Other)
  Sender: FDA-Public Use
  Company Number: PHHY2011BR27195

PATIENT
  Sex: Female

DRUGS (2)
  1. DIOVAN AMLO FIX [Suspect]
     Dosage: 160/5 MG
  2. DIOVAN AMLO FIX [Suspect]
     Dosage: 320 (DID NOT KNOW THE MILLIGRAM OF AMLODIPINE)

REACTIONS (3)
  - DIZZINESS [None]
  - BLOOD PRESSURE INCREASED [None]
  - EYE OPERATION [None]
